FAERS Safety Report 24777546 (Version 1)
Quarter: 2024Q4

REPORT INFORMATION
  Report Type: Spontaneous
  Country: US (occurrence: US)
  Receive Date: 20241226
  Receipt Date: 20241226
  Transmission Date: 20250115
  Serious: Yes (Other)
  Sender: SANOFI AVENTIS
  Company Number: US-SA-2024SA381196

PATIENT
  Sex: Male
  Weight: 77.27 kg

DRUGS (1)
  1. DUPIXENT [Suspect]
     Active Substance: DUPILUMAB
     Indication: Dermatitis atopic
     Dosage: 300 MG, QOW
     Route: 058

REACTIONS (5)
  - Malignant melanoma stage I [Unknown]
  - Ear swelling [Unknown]
  - Ear inflammation [Unknown]
  - Swelling face [Unknown]
  - Inflammation [Unknown]
